FAERS Safety Report 15767103 (Version 1)
Quarter: 2018Q4

REPORT INFORMATION
  Report Type: Spontaneous
  Country: JP (occurrence: JP)
  Receive Date: 20181227
  Receipt Date: 20181227
  Transmission Date: 20190205
  Serious: Yes (Other)
  Sender: FDA-Public Use
  Company Number: JP-SA-2018SA339021

PATIENT
  Age: 11 Year
  Sex: Male

DRUGS (7)
  1. PANITUMUMAB [Concomitant]
     Active Substance: PANITUMUMAB
     Indication: COLON CANCER STAGE IV
     Dosage: UNK, QCY
  2. FOLINIC ACID [Suspect]
     Active Substance: LEUCOVORIN
     Indication: BONE CANCER METASTATIC
     Dosage: UNK, QCY
  3. OXALIPLATIN. [Suspect]
     Active Substance: OXALIPLATIN
     Indication: BONE CANCER METASTATIC
     Dosage: UNK UNK, QCY
  4. FLUOROURACIL. [Suspect]
     Active Substance: FLUOROURACIL
     Indication: COLON CANCER STAGE IV
     Dosage: UNK UNK, QCY
  5. FLUOROURACIL. [Suspect]
     Active Substance: FLUOROURACIL
     Indication: BONE CANCER METASTATIC
     Dosage: UNK, QCY
  6. OXALIPLATIN. [Suspect]
     Active Substance: OXALIPLATIN
     Indication: COLON CANCER STAGE IV
     Dosage: UNK, QCY
  7. FOLINIC ACID [Suspect]
     Active Substance: LEUCOVORIN
     Indication: COLON CANCER STAGE IV
     Dosage: UNK, QCY

REACTIONS (3)
  - Ascites [Recovering/Resolving]
  - Nausea [Recovering/Resolving]
  - Performance status decreased [Recovering/Resolving]
